FAERS Safety Report 24716106 (Version 3)
Quarter: 2025Q1

REPORT INFORMATION
  Report Type: Spontaneous
  Country: US (occurrence: US)
  Receive Date: 20241210
  Receipt Date: 20250317
  Transmission Date: 20250409
  Serious: No
  Sender: ROCHE
  Company Number: US-ROCHE-10000152272

PATIENT
  Age: 48 Year
  Sex: Female
  Weight: 96 kg

DRUGS (2)
  1. XOLAIR [Suspect]
     Active Substance: OMALIZUMAB
     Indication: Urticaria chronic
     Route: 058
     Dates: start: 202501
  2. XOLAIR [Suspect]
     Active Substance: OMALIZUMAB
     Route: 058
     Dates: start: 20240819

REACTIONS (5)
  - Off label use [Unknown]
  - Mouth swelling [Unknown]
  - Pain [Unknown]
  - Oropharyngeal pain [Unknown]
  - Headache [Recovering/Resolving]
